FAERS Safety Report 5291912-8 (Version None)
Quarter: 2007Q2

REPORT INFORMATION
  Report Type: 
  Country: None (occurrence: None)
  Receive Date: 20070410
  Receipt Date: 20070403
  Transmission Date: 20071010
  Serious: Yes (Hospitalization, Other)
  Sender: FDA-Public Use
  Company Number: CA-AVENTIS-200616824GDDC

PATIENT
  Age: 74 Year
  Sex: Male

DRUGS (9)
  1. INSULIN GLARGINE [Suspect]
     Indication: DIABETES MELLITUS
     Route: 058
     Dates: start: 20050222
  2. OPTIPEN (INSULIN PUMP) [Suspect]
     Indication: DIABETES MELLITUS
  3. CODE UNBROKEN [Suspect]
     Dosage: DOSE: UNKNOWN
     Dates: start: 20050222
  4. ASPIRIN [Concomitant]
     Indication: PROPHYLAXIS
     Dates: start: 20000101
  5. PRAVASTATIN [Concomitant]
     Dates: start: 20030101
  6. RAMIPRIL [Concomitant]
     Dates: start: 20040101
  7. BISOPROLOL [Concomitant]
     Dosage: DOSE: UNK
  8. METFORMIN HCL [Concomitant]
     Dates: start: 20040601
  9. PANTOPRAZOLE SODIUM [Concomitant]
     Dosage: DOSE: UNK

REACTIONS (1)
  - PROSTATE CANCER [None]
